FAERS Safety Report 6829387-7 (Version None)
Quarter: 2010Q3

REPORT INFORMATION
  Report Type: 
  Country: None (occurrence: None)
  Receive Date: 20100709
  Receipt Date: 20070305
  Transmission Date: 20110219
  Serious: No
  Sender: FDA-Public Use
  Company Number: US-PFIZER INC-2007017436

PATIENT
  Sex: Female
  Weight: 81.65 kg

DRUGS (11)
  1. CHANTIX [Suspect]
     Indication: SMOKING CESSATION THERAPY
     Dates: start: 20070219, end: 20070228
  2. LEVAQUIN [Concomitant]
  3. PLAVIX [Concomitant]
  4. DILTIAZEM [Concomitant]
  5. LISINOPRIL [Concomitant]
  6. CRESTOR [Concomitant]
  7. FEXOFENADINE [Concomitant]
  8. AMBIEN [Concomitant]
  9. PROPOXYPHENE HCL [Concomitant]
  10. ALBUTEROL [Concomitant]
  11. ADVAIR DISKUS 100/50 [Concomitant]

REACTIONS (3)
  - MALAISE [None]
  - NAUSEA [None]
  - VOMITING [None]
